FAERS Safety Report 5166320-0 (Version None)
Quarter: 2006Q4

REPORT INFORMATION
  Report Type: 
  Country: None (occurrence: None)
  Receive Date: 20061129
  Receipt Date: 20061121
  Transmission Date: 20070319
  Serious: Yes (Disabling)
  Sender: FDA-Public Use
  Company Number: SP01012

PATIENT
  Age: 40 Year
  Sex: Male
  Weight: 71.4415 kg

DRUGS (1)
  1. XIFAXAN [Suspect]
     Dosage: 600 MG (1 IN 8 HR), ORAL
     Route: 048
     Dates: start: 20060928, end: 20061020

REACTIONS (2)
  - CLOSTRIDIUM DIFFICILE TOXIN TEST POSITIVE [None]
  - DIARRHOEA [None]
